FAERS Safety Report 6299388-9 (Version None)
Quarter: 2009Q3

REPORT INFORMATION
  Report Type: 
  Country: None (occurrence: None)
  Receive Date: 20090806
  Receipt Date: 20090804
  Transmission Date: 20100115
  Serious: Yes (Life-Threatening)
  Sender: FDA-Public Use
  Company Number: TW-JNJFOC-20090801551

PATIENT
  Age: 90 Year
  Sex: Female

DRUGS (2)
  1. DURAGESIC-100 [Suspect]
     Indication: PAIN MANAGEMENT
     Route: 062
  2. TRAMADOL HCL [Suspect]
     Indication: PAIN MANAGEMENT
     Route: 048

REACTIONS (2)
  - COMA [None]
  - PCO2 INCREASED [None]
